FAERS Safety Report 12404470 (Version 3)
Quarter: 2019Q2

REPORT INFORMATION
  Report Type: Spontaneous
  Country: GB (occurrence: GB)
  Receive Date: 20160525
  Receipt Date: 20190629
  Transmission Date: 20190711
  Serious: Yes (Other)
  Sender: FDA-Public Use
  Company Number: GB-BRISTOL-MYERS SQUIBB COMPANY-BMS-2016-038356

PATIENT
  Age: 65 Year
  Sex: Male

DRUGS (4)
  1. FUMARIC ACID [Suspect]
     Active Substance: FUMARIC ACID
     Indication: PSORIASIS
     Dosage: DOSAGE FORM: UNSPECIFIED
     Route: 065
     Dates: start: 201012, end: 201201
  2. HYDREA [Suspect]
     Active Substance: HYDROXYUREA
     Indication: PSORIASIS
     Dosage: DOSAGE FORM: UNSPECIFIED
     Route: 065
  3. STELARA [Suspect]
     Active Substance: USTEKINUMAB
     Indication: PSORIASIS
     Route: 058
     Dates: start: 201004
  4. FUMARIC ACID [Suspect]
     Active Substance: FUMARIC ACID
     Indication: PSORIASIS
     Route: 065

REACTIONS (3)
  - Psoriasis [Not Recovered/Not Resolved]
  - Drug ineffective [Unknown]
  - Product quality issue [Unknown]

NARRATIVE: CASE EVENT DATE: 201506
